FAERS Safety Report 10179136 (Version 2)
Quarter: 2014Q2

REPORT INFORMATION
  Report Type: Spontaneous
  Country: US (occurrence: None)
  Receive Date: 20140515
  Receipt Date: 20140605
  Transmission Date: 20141212
  Serious: Yes (Other)
  Sender: FDA-Public Use
  Company Number: 2014P1003944

PATIENT
  Age: 17 Year
  Sex: Male
  Weight: 83 kg

DRUGS (4)
  1. MYORISAN [Suspect]
     Indication: ACNE
     Route: 048
  2. VYANSE [Concomitant]
  3. RISPERDAL [Concomitant]
  4. INTUNIV [Concomitant]

REACTIONS (2)
  - Mood altered [None]
  - Partner stress [None]
